FAERS Safety Report 12419978 (Version 1)
Quarter: 2016Q2

REPORT INFORMATION
  Report Type: Spontaneous
  Country: FR (occurrence: FR)
  Receive Date: 20160531
  Receipt Date: 20160531
  Transmission Date: 20160815
  Serious: Yes (Hospitalization)
  Sender: FDA-Public Use
  Company Number: FR-009507513-1605FRA012958

PATIENT
  Age: 82 Year
  Sex: Female

DRUGS (8)
  1. INVANZ [Suspect]
     Active Substance: ERTAPENEM SODIUM
     Dosage: 1 G, BID
     Route: 042
  2. LIDOCAINE. [Suspect]
     Active Substance: LIDOCAINE
     Indication: LOCALISED INFECTION
     Dosage: INVANZ MIXED WITH LIDOCAIN 1 %, UNK
     Route: 058
     Dates: start: 20160522
  3. DOLIPRANE [Concomitant]
     Active Substance: ACETAMINOPHEN
     Dosage: 3 G, PRN (ALSO REPORTED AS ^QD^)
  4. ESIDREX [Concomitant]
     Active Substance: HYDROCHLOROTHIAZIDE
     Dosage: UNK
  5. ZYVOXID [Concomitant]
     Active Substance: LINEZOLID
     Dosage: 600 MG, BID
  6. INVANZ [Suspect]
     Active Substance: ERTAPENEM SODIUM
     Indication: LOCALISED INFECTION
     Dosage: UNK
  7. INVANZ [Suspect]
     Active Substance: ERTAPENEM SODIUM
     Dosage: 1 G, BID, INVANZ MIXED WITH LIDOCAIN 1 %
     Route: 058
     Dates: start: 20160522
  8. SERESTA [Concomitant]
     Active Substance: OXAZEPAM
     Dosage: 10 MG, UNK

REACTIONS (2)
  - Incorrect route of drug administration [Unknown]
  - Vein disorder [Unknown]

NARRATIVE: CASE EVENT DATE: 20160522
